FAERS Safety Report 18778023 (Version 2)
Quarter: 2021Q1

REPORT INFORMATION
  Report Type: Spontaneous
  Country: KR (occurrence: KR)
  Receive Date: 20210123
  Receipt Date: 20210218
  Transmission Date: 20210419
  Serious: Yes (Life-Threatening, Hospitalization, Other)
  Sender: FDA-Public Use
  Company Number: KR-ACCORD-215476

PATIENT
  Age: 64 Year
  Sex: Female

DRUGS (2)
  1. GEMCITABINE. [Concomitant]
     Active Substance: GEMCITABINE
     Indication: CHOLANGIOCARCINOMA
  2. CISPLATIN. [Suspect]
     Active Substance: CISPLATIN
     Indication: CHOLANGIOCARCINOMA
     Dosage: 3?WEEK INTERVALS

REACTIONS (1)
  - Atrioventricular block complete [Recovered/Resolved]
